FAERS Safety Report 5012226-7 (Version None)
Quarter: 2006Q2

REPORT INFORMATION
  Report Type: 
  Country: None (occurrence: None)
  Receive Date: 20060410
  Receipt Date: 20060131
  Transmission Date: 20061013
  Serious: No
  Sender: FDA-Public Use
  Company Number: 06P-163-0323752-00

PATIENT
  Age: 15 Year
  Sex: Male

DRUGS (13)
  1. DEPAKOTE [Suspect]
     Indication: AFFECTIVE DISORDER
     Dosage: 500 MG, 3 IN 1 D, PER ORAL
     Route: 048
     Dates: start: 20021015, end: 20051222
  2. DEPAKOTE [Suspect]
     Indication: AFFECTIVE DISORDER
     Dosage: 500 MG, 3 IN 1 D, PER ORAL
     Route: 048
     Dates: start: 20051222, end: 20051225
  3. DEPAKOTE ER [Suspect]
     Indication: AFFECTIVE DISORDER
     Dosage: SEE IMAGE
     Route: 048
     Dates: start: 20051225, end: 20060125
  4. DEPAKOTE ER [Suspect]
     Indication: AFFECTIVE DISORDER
     Dosage: SEE IMAGE
     Route: 048
     Dates: start: 20060125, end: 20060131
  5. DEPAKOTE ER [Suspect]
     Indication: AFFECTIVE DISORDER
     Dosage: SEE IMAGE
     Route: 048
     Dates: start: 20060131
  6. RISPERDAL [Concomitant]
  7. GABAPENTIN [Concomitant]
  8. METHYLPHENIDATE HCL [Concomitant]
  9. OLANZAPINE [Concomitant]
  10. LITHIUM CARBONATE [Concomitant]
  11. LEVOTHYROXINE SODIUM [Concomitant]
  12. LORAZEPAM [Concomitant]
  13. QUETIAPINE FUMARATE [Concomitant]

REACTIONS (2)
  - DRUG LEVEL FLUCTUATING [None]
  - PLATELET COUNT DECREASED [None]
